FAERS Safety Report 17303040 (Version 1)
Quarter: 2020Q1

REPORT INFORMATION
  Report Type: Spontaneous
  Country: US (occurrence: US)
  Receive Date: 20200122
  Receipt Date: 20200122
  Transmission Date: 20200409
  Serious: No
  Sender: FDA-Public Use
  Company Number: US-NEPHRON STERILE COMPOUNDING CENTER-2079302

PATIENT
  Age: 60 Year
  Sex: Male
  Weight: 75 kg

DRUGS (11)
  1. CEFAZOLIN SODIUM. [Concomitant]
     Active Substance: CEFAZOLIN SODIUM
     Route: 040
     Dates: start: 20200110, end: 20200110
  2. HYDROMORPHONE HYDROCHLORIDE. [Concomitant]
     Active Substance: HYDROMORPHONE HYDROCHLORIDE
     Route: 040
     Dates: start: 20200110, end: 20200110
  3. ROCURONIUM BROMIDE. [Suspect]
     Active Substance: ROCURONIUM BROMIDE
     Indication: SPINAL FUSION SURGERY
     Route: 040
     Dates: start: 20200110, end: 20200110
  4. MIDAZOLAM HYDROCHLORIDE. [Concomitant]
     Active Substance: MIDAZOLAM HYDROCHLORIDE
     Route: 040
     Dates: start: 20200110, end: 20200110
  5. DEXAMETHASONE. [Concomitant]
     Active Substance: DEXAMETHASONE
     Route: 040
     Dates: start: 20200110, end: 20200110
  6. SUCCINYLCHOLINE CHLORIDE. [Concomitant]
     Active Substance: SUCCINYLCHOLINE CHLORIDE
     Route: 040
     Dates: start: 20200110, end: 20200110
  7. LABETALOL HYDROCHLORIDE. [Concomitant]
     Active Substance: LABETALOL HYDROCHLORIDE
     Route: 040
     Dates: start: 20200110, end: 20200110
  8. PROPOFOL. [Concomitant]
     Active Substance: PROPOFOL
     Route: 040
     Dates: start: 20200110, end: 20200110
  9. ACETAMINOPHEN. [Concomitant]
     Active Substance: ACETAMINOPHEN
     Route: 040
     Dates: start: 20200110, end: 20200110
  10. FENTANYL. [Concomitant]
     Active Substance: FENTANYL
     Route: 040
     Dates: start: 20200110, end: 20200110
  11. PHENYLEPHRINE HYDROCHLORIDE. [Concomitant]
     Active Substance: PHENYLEPHRINE HYDROCHLORIDE
     Route: 040
     Dates: start: 20200110, end: 20200110

REACTIONS (1)
  - Drug ineffective [Recovered/Resolved]

NARRATIVE: CASE EVENT DATE: 20200110
